FAERS Safety Report 19872456 (Version 1)
Quarter: 2021Q3

REPORT INFORMATION
  Report Type: Spontaneous
  Country: US (occurrence: US)
  Receive Date: 20210923
  Receipt Date: 20210923
  Transmission Date: 20211014
  Serious: No
  Sender: FDA-Public Use
  Company Number: None

PATIENT
  Age: 69 Year
  Sex: Female
  Weight: 76.05 kg

DRUGS (14)
  1. MULTIVITAMIN [Concomitant]
     Active Substance: VITAMINS
  2. REGEN?COV [Suspect]
     Active Substance: CASIRIVIMAB\IMDEVIMAB
     Indication: SARS-COV-2 TEST POSITIVE
     Dosage: ?          OTHER FREQUENCY:ONCE;?
     Route: 042
     Dates: start: 20210916, end: 20210916
  3. LEVOTHYROXINE 100 MCG [Concomitant]
     Active Substance: LEVOTHYROXINE
  4. VITAMIN D3  2,000 UNITS [Concomitant]
  5. IPRATROPIUM 0.02% NEB SOLN [Concomitant]
  6. HCTZ 12.5 MG [Concomitant]
  7. ALBUTEROL MDI [Concomitant]
     Active Substance: ALBUTEROL
  8. ESTRACE 0.01% VAG CREAM [Concomitant]
  9. TRELEGY ELLIPTA 62.5?25 MCG INHALER [Concomitant]
  10. OSTEO BI?FLEX [Concomitant]
     Active Substance: CHONDROITIN SULFATE A\GLUCOSAMINE
  11. PRAVASTATIN. [Concomitant]
     Active Substance: PRAVASTATIN
  12. ALBUTEROL 0.083MG NEB SOLN [Concomitant]
  13. ALPRAZOLAM 0.5 MG [Concomitant]
     Active Substance: ALPRAZOLAM
  14. FLONASE 50 MCG/ACTUATION NASAL SPRAY [Concomitant]

REACTIONS (4)
  - Loss of consciousness [None]
  - Infusion related reaction [None]
  - Hyperhidrosis [None]
  - Dyspepsia [None]

NARRATIVE: CASE EVENT DATE: 20210916
